FAERS Safety Report 9419314 (Version 1)
Quarter: 2013Q3

REPORT INFORMATION
  Report Type: Spontaneous
  Country: US (occurrence: US)
  Receive Date: 20130725
  Receipt Date: 20130725
  Transmission Date: 20140515
  Serious: No
  Sender: FDA-Public Use
  Company Number: US-GLAXOSMITHKLINE-A1011124A

PATIENT
  Age: 57 Year
  Sex: Female

DRUGS (4)
  1. LAMICTAL [Suspect]
     Indication: EPILEPSY
     Dosage: 175MG PER DAY
     Route: 048
     Dates: start: 201201
  2. VITAMINS [Concomitant]
  3. FISH OIL SUPPLEMENTS [Concomitant]
  4. ASPIRIN [Concomitant]

REACTIONS (12)
  - Dizziness [Unknown]
  - Diplopia [Unknown]
  - Vision blurred [Unknown]
  - Muscular weakness [Unknown]
  - Rhinorrhoea [Unknown]
  - Rhinitis [Unknown]
  - Rash [Unknown]
  - Rash [Recovered/Resolved]
  - Erythema [Not Recovered/Not Resolved]
  - Insomnia [Unknown]
  - Chest pain [Unknown]
  - Dry mouth [Unknown]
